FAERS Safety Report 19987678 (Version 1)
Quarter: 2021Q4

REPORT INFORMATION
  Report Type: Report from Study
  Country: US (occurrence: US)
  Receive Date: 20211022
  Receipt Date: 20211022
  Transmission Date: 20220303
  Serious: Yes (Hospitalization, Other)
  Sender: FDA-Public Use
  Company Number: US-BAYER-2021A231379

PATIENT
  Age: 57 Year
  Sex: Male

DRUGS (2)
  1. STIVARGA [Suspect]
     Active Substance: REGORAFENIB
     Indication: Neoplasm malignant
     Dosage: 40 MG DAILY WITH LOW FAT BREAKFAST FOR 21 DAYS ON THEN 7 DAYS OFF AND REPEAT
     Route: 048
     Dates: end: 202109
  2. STIVARGA [Suspect]
     Active Substance: REGORAFENIB
     Indication: Metastases to bone

REACTIONS (4)
  - Haematemesis [Recovered/Resolved]
  - Ulcer haemorrhage [Recovered/Resolved]
  - Hospitalisation [None]
  - Off label use [None]

NARRATIVE: CASE EVENT DATE: 20210901
